FAERS Safety Report 21102691 (Version 1)
Quarter: 2022Q3

REPORT INFORMATION
  Report Type: Spontaneous
  Country: US (occurrence: US)
  Receive Date: 20220719
  Receipt Date: 20220719
  Transmission Date: 20221027
  Serious: No
  Sender: FDA-Public Use
  Company Number: US-ORGANON-O2207USA001307

PATIENT
  Age: 57 Year
  Sex: Male

DRUGS (3)
  1. SINGULAIR [Suspect]
     Active Substance: MONTELUKAST SODIUM
     Indication: Capillary leak syndrome
     Dosage: UNK
     Route: 048
  2. METHYLENE BLUE [Concomitant]
     Active Substance: METHYLENE BLUE
     Indication: Capillary leak syndrome
     Dosage: UNK
  3. TERBUTALINE [Concomitant]
     Active Substance: TERBUTALINE
     Indication: Capillary leak syndrome
     Dosage: UNK

REACTIONS (1)
  - Product use in unapproved indication [Unknown]
